FAERS Safety Report 25332250 (Version 1)
Quarter: 2025Q2

REPORT INFORMATION
  Report Type: Spontaneous
  Country: DE (occurrence: DE)
  Receive Date: 20250519
  Receipt Date: 20250519
  Transmission Date: 20250717
  Serious: Yes (Death, Other)
  Sender: PFIZER
  Company Number: DE-PFIZER INC-PV202500058664

PATIENT
  Age: 65 Year
  Sex: Male

DRUGS (5)
  1. VORICONAZOLE [Suspect]
     Active Substance: VORICONAZOLE
     Indication: Fusarium infection
     Route: 042
     Dates: start: 2021
  2. VORICONAZOLE [Suspect]
     Active Substance: VORICONAZOLE
     Route: 042
     Dates: start: 2021
  3. VORICONAZOLE [Suspect]
     Active Substance: VORICONAZOLE
     Route: 042
     Dates: start: 2021
  4. AMPHOTERICIN B [Suspect]
     Active Substance: AMPHOTERICIN B
     Indication: Fusarium infection
     Route: 042
     Dates: start: 2021
  5. AMPHOTERICIN B [Suspect]
     Active Substance: AMPHOTERICIN B
     Route: 042
     Dates: start: 2021

REACTIONS (2)
  - Drug ineffective [Fatal]
  - Multiple organ dysfunction syndrome [Fatal]

NARRATIVE: CASE EVENT DATE: 20210101
